FAERS Safety Report 9376059 (Version 2)
Quarter: 2013Q4

REPORT INFORMATION
  Report Type: Spontaneous
  Country: GB (occurrence: GB)
  Receive Date: 20130629
  Receipt Date: 20131205
  Transmission Date: 20140711
  Serious: Yes (Death)
  Sender: FDA-Public Use
  Company Number: GB-MYLANLABS-2013S1013171

PATIENT
  Sex: Male

DRUGS (2)
  1. MYCOPHENOLATE MOFETIL [Suspect]
     Indication: PRODUCT USED FOR UNKNOWN INDICATION
  2. NPLATE [Suspect]
     Indication: IMMUNE THROMBOCYTOPENIC PURPURA

REACTIONS (10)
  - Blood albumin decreased [Unknown]
  - Duodenal ulcer [Unknown]
  - Oedema peripheral [Unknown]
  - Platelet count decreased [Unknown]
  - Protein-losing gastroenteropathy [Fatal]
  - Malaise [Unknown]
  - Gout [Fatal]
  - Hypertension [Fatal]
  - Immune thrombocytopenic purpura [Unknown]
  - Pneumonia [Fatal]
